FAERS Safety Report 21525026 (Version 1)
Quarter: 2022Q4

REPORT INFORMATION
  Report Type: Spontaneous
  Country: NL (occurrence: NL)
  Receive Date: 20221030
  Receipt Date: 20221030
  Transmission Date: 20230113
  Serious: Yes (Other)
  Sender: FDA-Public Use
  Company Number: None

PATIENT
  Sex: Female
  Weight: 74 kg

DRUGS (3)
  1. HALOPERIDOL [Suspect]
     Active Substance: HALOPERIDOL
     Indication: Bipolar I disorder
     Dosage: 1X PER DAY 2 PIECE, HALOPERIDOL TABLET 1MG
     Dates: start: 20220919, end: 20220929
  2. LORAZEPAM [Concomitant]
     Active Substance: LORAZEPAM
     Indication: Product used for unknown indication
     Dosage: TABLET, 1 MG (MILLIGRAM) , TABLET 1MG
  3. LAMOTRIGINE [Concomitant]
     Active Substance: LAMOTRIGINE
     Indication: Product used for unknown indication
     Dosage: 150 MILLIGRAM DAILY; UNDER CONSTRUCTION, STARTED 150 MG DAILY AT THE TIME OF COMPLAINT

REACTIONS (1)
  - Hyperprolactinaemia [Unknown]
